FAERS Safety Report 10686698 (Version 9)
Quarter: 2016Q2

REPORT INFORMATION
  Report Type: Spontaneous
  Country: CA (occurrence: CA)
  Receive Date: 20150101
  Receipt Date: 20160608
  Transmission Date: 20160815
  Serious: Yes (Hospitalization, Other)
  Sender: FDA-Public Use
  Company Number: CA-GSKJP-KK201317943GSK1550188002

PATIENT
  Age: 42 Year
  Sex: Female
  Weight: 41 kg

DRUGS (2)
  1. BENLYSTA [Suspect]
     Active Substance: BELIMUMAB
     Indication: SYSTEMIC LUPUS ERYTHEMATOSUS
     Dosage: WEEKLY INFUSION AT WEEK 0, 2, 4 AND THEN EVERY 4 WEEKS
     Route: 042
     Dates: start: 20120301
  2. BENLYSTA [Suspect]
     Active Substance: BELIMUMAB
     Dosage: 420 MG, UNK
     Route: 042

REACTIONS (16)
  - Nausea [Unknown]
  - Fatigue [Unknown]
  - Arthritis [Unknown]
  - Lupus nephritis [Unknown]
  - Malaise [Unknown]
  - Infective tenosynovitis [Unknown]
  - Localised infection [Recovered/Resolved]
  - Gastroenteritis viral [Recovered/Resolved]
  - Blood glucose increased [Unknown]
  - Overgrowth bacterial [Unknown]
  - Gallbladder operation [Unknown]
  - Tendonitis [Unknown]
  - Nasopharyngitis [Unknown]
  - Central venous catheterisation [Unknown]
  - Influenza [Unknown]
  - Cholelithiasis [Unknown]

NARRATIVE: CASE EVENT DATE: 20120403
